FAERS Safety Report 8558962-7 (Version None)
Quarter: 2012Q3

REPORT INFORMATION
  Report Type: 
  Country: None (occurrence: None)
  Receive Date: 20120802
  Receipt Date: 20120720
  Transmission Date: 20120928
  Serious: Yes (Other)
  Sender: FDA-Public Use
  Company Number: US-PAR PHARMACEUTICAL, INC-2012SCPR004513

PATIENT

DRUGS (3)
  1. LORATADINE [Concomitant]
     Indication: RHINORRHOEA
  2. DIVALPROEX SODIUM ER TABLETS [Suspect]
     Indication: EPILEPSY
     Dosage: UNK, UNKNOWN
     Route: 065
     Dates: start: 20120406
  3. LORATADINE [Concomitant]
     Indication: SNEEZING
     Dosage: 1 DF, / DAY
     Route: 048
     Dates: start: 20120701

REACTIONS (10)
  - HEADACHE [None]
  - DRY THROAT [None]
  - INSOMNIA [None]
  - DIARRHOEA [None]
  - FATIGUE [None]
  - DIZZINESS [None]
  - CHEST PAIN [None]
  - POLLAKIURIA [None]
  - NAUSEA [None]
  - ABNORMAL DREAMS [None]
